FAERS Safety Report 6854397-3 (Version None)
Quarter: 2010Q3

REPORT INFORMATION
  Report Type: 
  Country: None (occurrence: None)
  Receive Date: 20100717
  Receipt Date: 20080104
  Transmission Date: 20110219
  Serious: No
  Sender: FDA-Public Use
  Company Number: US-PFIZER INC-2008003383

PATIENT
  Sex: Male
  Weight: 68.2 kg

DRUGS (1)
  1. CHANTIX [Suspect]
     Indication: SMOKING CESSATION THERAPY
     Dates: start: 20071201

REACTIONS (4)
  - DIARRHOEA [None]
  - DRUG DOSE OMISSION [None]
  - NAUSEA [None]
  - VOMITING [None]
